FAERS Safety Report 4999012-9 (Version None)
Quarter: 2006Q2

REPORT INFORMATION
  Report Type: 
  Country: None (occurrence: None)
  Receive Date: 20060509
  Receipt Date: 20060425
  Transmission Date: 20061013
  Serious: Yes (Life-Threatening, Hospitalization, Other)
  Sender: FDA-Public Use
  Company Number: 430018M06USA

PATIENT
  Age: 59 Year
  Sex: Male
  Weight: 86.637 kg

DRUGS (15)
  1. NOVANTRONE [Suspect]
     Indication: MULTIPLE SCLEROSIS
     Dosage: 23 MG, 1 IN 3 MONTHS
     Dates: start: 20020208, end: 20050203
  2. REBIF [Concomitant]
  3. BACLOFEN [Concomitant]
  4. PROVIGIL [Concomitant]
  5. TYLENOL (COTYLENOL) [Concomitant]
  6. LYRICA [Concomitant]
  7. ZOLOFT [Concomitant]
  8. ROZEREM (ALL OTHER THERAPEUTIC PRODUCTS) [Concomitant]
  9. PLETAL (CILOSTAZOL) [Concomitant]
  10. KLONOPIN [Concomitant]
  11. CIALIS [Concomitant]
  12. ALEVE [Concomitant]
  13. LORTAB [Concomitant]
  14. MACRODANTIN [Concomitant]
  15. LIDODERM (LIDOCAINE/00033401/) [Concomitant]

REACTIONS (5)
  - BRAIN NATRIURETIC PEPTIDE INCREASED [None]
  - CARDIAC FAILURE CONGESTIVE [None]
  - CARDIOMYOPATHY [None]
  - DYSPNOEA PAROXYSMAL NOCTURNAL [None]
  - LOW DENSITY LIPOPROTEIN INCREASED [None]
